FAERS Safety Report 15813624 (Version 1)
Quarter: 2019Q1

REPORT INFORMATION
  Report Type: Spontaneous
  Country: IT (occurrence: IT)
  Receive Date: 20190111
  Receipt Date: 20190111
  Transmission Date: 20190417
  Serious: Yes (Other)
  Sender: FDA-Public Use
  Company Number: IT-MYLANLABS-2019M1002435

PATIENT
  Age: 87 Year
  Sex: Female

DRUGS (4)
  1. FUROSEMIDE. [Suspect]
     Active Substance: FUROSEMIDE
     Indication: PRODUCT USED FOR UNKNOWN INDICATION
     Dosage: 25 MILLIGRAM, QD
  2. COUMADIN [Concomitant]
     Active Substance: WARFARIN SODIUM
     Indication: ARRHYTHMIA PROPHYLAXIS
     Dosage: 5 MILLIGRAM, QD
  3. LOPRESOR                           /00376902/ [Concomitant]
     Active Substance: METOPROLOL TARTRATE
  4. KANRENOL [Concomitant]
     Active Substance: CANRENOATE POTASSIUM
     Dosage: 100 MILLIGRAM, QD

REACTIONS (2)
  - Hypokalaemia [Recovered/Resolved]
  - Hyponatraemic syndrome [Recovered/Resolved]

NARRATIVE: CASE EVENT DATE: 20180624
